FAERS Safety Report 6355707-6 (Version None)
Quarter: 2009Q3

REPORT INFORMATION
  Report Type: 
  Country: None (occurrence: None)
  Receive Date: 20090910
  Receipt Date: 20090825
  Transmission Date: 20100115
  Serious: Yes (Hospitalization, Other)
  Sender: FDA-Public Use
  Company Number: ACO_00590_2009

PATIENT
  Sex: Female

DRUGS (11)
  1. TIZANIDINE HYDROCHLORIDE [Suspect]
     Indication: DRUG USE FOR UNKNOWN INDICATION
     Dosage: (2 TABS/DAY IF NECESSARY)
     Dates: start: 20090701
  2. ENTUMIN (ENTUMIN - CLOTIAPINE) (NOT SPECIFIED) [Suspect]
     Indication: SLEEP DISORDER
     Dosage: (40 MG)
     Dates: start: 20090701
  3. INEXIUM /01479302/ [Concomitant]
  4. ROPINIROLE HYDROCHLORIDE [Concomitant]
  5. AMITRIPTYLINE [Concomitant]
  6. ABILIFY [Concomitant]
  7. FLURAZEPAM [Concomitant]
  8. SIMCORA [Concomitant]
  9. NOVOTHYRAL [Concomitant]
  10. TENORMIN [Concomitant]
  11. JANUMET [Concomitant]

REACTIONS (3)
  - DRUG ABUSE [None]
  - ELECTROCARDIOGRAM QT PROLONGED [None]
  - SLEEP DISORDER [None]
